FAERS Safety Report 21263898 (Version 2)
Quarter: 2022Q3

REPORT INFORMATION
  Report Type: Report from Study
  Country: FR (occurrence: FR)
  Receive Date: 20220829
  Receipt Date: 20220930
  Transmission Date: 20221026
  Serious: Yes (Death, Hospitalization, Other)
  Sender: FDA-Public Use
  Company Number: FR-BRISTOL-MYERS SQUIBB COMPANY-2022-089379

PATIENT
  Age: 77 Year
  Sex: Female

DRUGS (2)
  1. IPILIMUMAB [Suspect]
     Active Substance: IPILIMUMAB
     Indication: Colorectal cancer metastatic
     Dosage: 18 INFUSIONS
     Route: 065
     Dates: start: 20220609, end: 20220721
  2. NIVOLUMAB [Suspect]
     Active Substance: NIVOLUMAB
     Indication: Colorectal cancer metastatic
     Dosage: 27 INFUSIONS
     Route: 065
     Dates: start: 20220609, end: 20220804

REACTIONS (2)
  - Colitis [Not Recovered/Not Resolved]
  - Gastric perforation [Fatal]

NARRATIVE: CASE EVENT DATE: 20220809
